FAERS Safety Report 17652047 (Version 5)
Quarter: 2020Q3

REPORT INFORMATION
  Report Type: Spontaneous
  Country: US (occurrence: US)
  Receive Date: 20200409
  Receipt Date: 20200902
  Transmission Date: 20201102
  Serious: Yes (Other)
  Sender: FDA-Public Use
  Company Number: US-ASTRAZENECA-2020SE47407

PATIENT
  Age: 928 Month
  Sex: Male
  Weight: 92.5 kg

DRUGS (2)
  1. BYDUREON [Suspect]
     Active Substance: EXENATIDE
     Indication: TYPE 2 DIABETES MELLITUS
     Route: 058
     Dates: start: 2018
  2. METFORMIN [Concomitant]
     Active Substance: METFORMIN HYDROCHLORIDE
     Indication: TYPE 2 DIABETES MELLITUS
     Route: 065

REACTIONS (12)
  - Purulent discharge [Unknown]
  - Infection [Recovered/Resolved]
  - Device malfunction [Unknown]
  - Product dose omission issue [Recovered/Resolved]
  - Malignant melanoma [Unknown]
  - Incorrect dose administered by device [Unknown]
  - Injection site vesicles [Unknown]
  - Dysphonia [Unknown]
  - Arthralgia [Unknown]
  - Weight fluctuation [Unknown]
  - Intentional product misuse [Unknown]
  - Injection site pain [Unknown]

NARRATIVE: CASE EVENT DATE: 201905
